FAERS Safety Report 8154037-X (Version None)
Quarter: 2012Q1

REPORT INFORMATION
  Report Type: 
  Country: None (occurrence: None)
  Receive Date: 20120221
  Receipt Date: 20120221
  Transmission Date: 20120608
  Serious: No
  Sender: FDA-Public Use
  Company Number: None

PATIENT
  Sex: Female
  Weight: 2.7215 kg

DRUGS (1)
  1. TOPAMAX [Suspect]
     Indication: CONVULSION
     Dosage: 100.0 MG
     Route: 048
     Dates: start: 20061120, end: 20110203

REACTIONS (3)
  - AUTISM [None]
  - MATERNAL DRUGS AFFECTING FOETUS [None]
  - DEVELOPMENTAL DELAY [None]
